FAERS Safety Report 16208385 (Version 1)
Quarter: 2019Q2

REPORT INFORMATION
  Report Type: Report from Study
  Country: FR (occurrence: FR)
  Receive Date: 20190417
  Receipt Date: 20190417
  Transmission Date: 20190711
  Serious: Yes (Other)
  Sender: FDA-Public Use
  Company Number: FR-MYLANLABS-2019M1036051

PATIENT

DRUGS (4)
  1. CALCIUM [Concomitant]
     Active Substance: CALCIUM
     Indication: PROPHYLAXIS
     Route: 065
  2. VITAMIN D                          /00107901/ [Concomitant]
     Active Substance: ERGOCALCIFEROL
     Indication: PROPHYLAXIS
     Route: 065
  3. SODIUM CHLORIDE. [Concomitant]
     Active Substance: SODIUM CHLORIDE
     Indication: OSTEOPOROSIS
     Dosage: ZOLEDRONIC ACID WAS DILUTED IN 0.9% SODIUM CHLORIDE (4MG IN 100ML) AND WAS ADMINISTERED OVER 1 HO...
     Route: 041
  4. ZOLEDRONIC ACID [Suspect]
     Active Substance: ZOLEDRONIC ACID
     Indication: OSTEOPOROSIS
     Dosage: WITH A MAXIMUM DOSE OF 4MG; ZOLEDRONIC ACID WAS DILUTED IN 0.9% SODIUM CHLORIDE (4MG IN 100ML) AN...
     Route: 041

REACTIONS (1)
  - Febrile convulsion [Unknown]
